FAERS Safety Report 6157553-5 (Version None)
Quarter: 2009Q2

REPORT INFORMATION
  Report Type: 
  Country: None (occurrence: None)
  Receive Date: 20090416
  Receipt Date: 20090409
  Transmission Date: 20091009
  Serious: Yes (Disabling)
  Sender: FDA-Public Use
  Company Number: BE-ABBOTT-09P-013-0564375-00

PATIENT
  Sex: Female
  Weight: 74 kg

DRUGS (3)
  1. REDUCTIL [Suspect]
     Indication: WEIGHT DECREASED
     Dates: start: 20081114, end: 20081128
  2. LEVOTHYROXINE SODIUM [Concomitant]
     Indication: HYPOTHYROIDISM
     Dosage: 75 MG DAILY
  3. LIPANTHYL [Concomitant]
     Indication: DRUG USE FOR UNKNOWN INDICATION

REACTIONS (2)
  - AGEUSIA [None]
  - DYSGEUSIA [None]
